FAERS Safety Report 13111204 (Version 1)
Quarter: 2017Q1

REPORT INFORMATION
  Report Type: Spontaneous
  Country: NL (occurrence: NL)
  Receive Date: 20170112
  Receipt Date: 20170112
  Transmission Date: 20170428
  Serious: Yes (Congenital Anomaly, Other)
  Sender: FDA-Public Use
  Company Number: NL-ABBVIE-17P-114-1830542-00

PATIENT
  Sex: Male

DRUGS (1)
  1. VALPROIC ACID. [Suspect]
     Active Substance: VALPROIC ACID
     Indication: MATERNAL EXPOSURE TIMING UNSPECIFIED
     Route: 064

REACTIONS (26)
  - Oxygen saturation decreased [Recovered/Resolved]
  - Skull malformation [Unknown]
  - Plagiocephaly [Unknown]
  - Congenital hand malformation [Unknown]
  - Foot deformity [Unknown]
  - Congenital aortic anomaly [Unknown]
  - Psychomotor skills impaired [Unknown]
  - Foetal exposure during pregnancy [Unknown]
  - Bradycardia [Recovered/Resolved]
  - Foetal anticonvulsant syndrome [Unknown]
  - Nipple disorder [Unknown]
  - Syndactyly [Unknown]
  - Speech disorder [Unknown]
  - Speech disorder developmental [Unknown]
  - Cryptorchism [Unknown]
  - Autism [Unknown]
  - Craniosynostosis [Unknown]
  - Hypospadias [Unknown]
  - Strabismus [Unknown]
  - Myoclonic epilepsy [Unknown]
  - Hypoglycaemia [Recovered/Resolved]
  - Psychomotor retardation [Unknown]
  - Tremor [Recovered/Resolved]
  - Apnoea [Recovered/Resolved]
  - Dysmorphism [Unknown]
  - Selective eating disorder [Unknown]
